FAERS Safety Report 5489998-0 (Version None)
Quarter: 2007Q4

REPORT INFORMATION
  Report Type: 
  Country: None (occurrence: None)
  Receive Date: 20071018
  Receipt Date: 20071012
  Transmission Date: 20080405
  Serious: Yes (Hospitalization)
  Sender: FDA-Public Use
  Company Number: PHBS2007JP15071

PATIENT
  Age: 43 Year
  Sex: Male
  Weight: 70 kg

DRUGS (8)
  1. TEGRETOL [Suspect]
     Indication: NERVE INJURY
     Dosage: 200 MG/DAY
     Route: 048
     Dates: start: 20070807, end: 20070827
  2. LIPITOR [Suspect]
     Dosage: 10 MG/DAY
     Route: 048
     Dates: start: 20070826
  3. LUDIOMIL [Suspect]
     Dosage: 10 MG/DAY
     Route: 048
     Dates: start: 20070815, end: 20070827
  4. PL GRAN. [Suspect]
     Dosage: 3 MG/DAY
     Route: 048
     Dates: start: 20070822, end: 20070824
  5. PL GRAN. [Suspect]
     Dosage: 3 G/DAY
     Route: 048
     Dates: start: 20070828, end: 20070829
  6. MEXITIL [Suspect]
     Indication: NERVE INJURY
     Dosage: 300 MG/DAY
     Route: 048
     Dates: start: 20070720, end: 20070827
  7. DIOVAN [Suspect]
     Dosage: 20 MG/DAY
     Route: 048
     Dates: start: 20070722, end: 20070827
  8. MELBIN [Suspect]
     Dosage: 500 MG/DAY
     Route: 048
     Dates: start: 20070810, end: 20070827

REACTIONS (3)
  - DRUG RASH WITH EOSINOPHILIA AND SYSTEMIC SYMPTOMS [None]
  - PYREXIA [None]
  - RASH GENERALISED [None]
